FAERS Safety Report 7595006-8 (Version None)
Quarter: 2011Q3

REPORT INFORMATION
  Report Type: 
  Country: None (occurrence: None)
  Receive Date: 20110707
  Receipt Date: 20110629
  Transmission Date: 20111222
  Serious: Yes (Other)
  Sender: FDA-Public Use
  Company Number: GB-SANOFI-AVENTIS-2011SA041463

PATIENT
  Age: 58 Year
  Sex: Female
  Weight: 76 kg

DRUGS (4)
  1. CETIRIZINE HCL [Concomitant]
     Dates: start: 20110324, end: 20110421
  2. ESTRIOL [Concomitant]
     Dates: start: 20110324, end: 20110325
  3. NASACORT [Suspect]
     Route: 065
     Dates: start: 20110607
  4. LEVOTHYROXINE SODIUM [Concomitant]
     Dates: start: 20110204

REACTIONS (2)
  - DIZZINESS [None]
  - URINARY INCONTINENCE [None]
